FAERS Safety Report 26189686 (Version 1)
Quarter: 2025Q4

REPORT INFORMATION
  Report Type: Report from Study
  Country: EG (occurrence: EG)
  Receive Date: 20251223
  Receipt Date: 20251223
  Transmission Date: 20260117
  Serious: Yes (Other)
  Sender: ROCHE
  Company Number: EG-ROCHE-3224094

PATIENT
  Age: 44 Year
  Sex: Female
  Weight: 75.00 kg

DRUGS (1)
  1. OCREVUS [Suspect]
     Active Substance: OCRELIZUMAB
     Indication: Multiple sclerosis
     Route: 042
     Dates: start: 20200111

REACTIONS (8)
  - Headache [Recovered/Resolved]
  - Dizziness [Not Recovered/Not Resolved]
  - Movement disorder [Recovered/Resolved]
  - Balance disorder [Recovered/Resolved]
  - Neuropathy peripheral [Unknown]
  - Hepatic enzyme increased [Recovered/Resolved]
  - Eye pain [Recovered/Resolved]
  - Gait disturbance [Recovered/Resolved]
